FAERS Safety Report 9690155 (Version 8)
Quarter: 2014Q4

REPORT INFORMATION
  Report Type: Report from Study
  Country: CA (occurrence: CA)
  Receive Date: 20131115
  Receipt Date: 20141103
  Transmission Date: 20150529
  Serious: Yes (Other)
  Sender: FDA-Public Use
  Company Number: PHHY2013CA032780

PATIENT
  Age: 53 Year
  Sex: Female

DRUGS (1)
  1. SANDOSTATIN LAR DEPOT [Suspect]
     Active Substance: OCTREOTIDE ACETATE
     Indication: NEUROENDOCRINE TUMOUR
     Dosage: 30 MG, EVERY 4 WEEKS
     Route: 030
     Dates: start: 20130329

REACTIONS (11)
  - Wrist fracture [Unknown]
  - Urethral neoplasm [Unknown]
  - Anxiety [Recovered/Resolved]
  - Stress [Unknown]
  - Heart rate increased [Unknown]
  - Syncope [Unknown]
  - Fall [Unknown]
  - Neoplasm malignant [Unknown]
  - Panic attack [Recovered/Resolved]
  - Dizziness [Recovered/Resolved]
  - Hypertension [Unknown]

NARRATIVE: CASE EVENT DATE: 20130329
